FAERS Safety Report 11687406 (Version 2)
Quarter: 2015Q4

REPORT INFORMATION
  Report Type: Spontaneous
  Country: MX (occurrence: MX)
  Receive Date: 20151030
  Receipt Date: 20151110
  Transmission Date: 20160304
  Serious: Yes (Hospitalization, Other)
  Sender: FDA-Public Use
  Company Number: MX-SA-2015SA168713

PATIENT
  Sex: Male

DRUGS (6)
  1. AMPICILLIN [Concomitant]
     Active Substance: AMPICILLIN
     Route: 042
  2. FENTANYL. [Concomitant]
     Active Substance: FENTANYL
     Route: 042
  3. AMIKACIN [Concomitant]
     Active Substance: AMIKACIN
     Route: 042
  4. BENZOCAINE. [Suspect]
     Active Substance: BENZOCAINE
     Indication: WOUND TREATMENT
     Route: 065
  5. ACETAMINOPHEN. [Interacting]
     Active Substance: ACETAMINOPHEN
     Route: 042
  6. SUFREXAL [Concomitant]
     Indication: ANAESTHESIA
     Dosage: 20% BENZOCAINE AND 2% KETANSERIN
     Route: 061

REACTIONS (2)
  - Methaemoglobinaemia [Recovered/Resolved]
  - Drug interaction [Recovered/Resolved]
